FAERS Safety Report 5005614-6 (Version None)
Quarter: 2006Q2

REPORT INFORMATION
  Report Type: 
  Country: None (occurrence: None)
  Receive Date: 20060517
  Receipt Date: 20060517
  Transmission Date: 20061013
  Serious: Yes (Life-Threatening, Hospitalization)
  Sender: FDA-Public Use
  Company Number: None

PATIENT
  Sex: Male

DRUGS (9)
  1. SIMVASTATIN [Suspect]
     Indication: HYPERLIPIDAEMIA
     Dosage: 40 MG  DAILY  PO
     Route: 048
     Dates: start: 20051206, end: 20060223
  2. GEMFIBROZIL [Suspect]
     Indication: HYPERLIPIDAEMIA
     Dosage: 600 MG  BID  PO
     Route: 048
     Dates: start: 20051206, end: 20060223
  3. CLARITHROMYCIN [Concomitant]
  4. AMOXICILLIN [Concomitant]
  5. OMEPRAZOLE [Concomitant]
  6. FOSINOPRIL SODIUM [Concomitant]
  7. FUROSEMIDE [Concomitant]
  8. METOPROLOL TARTRATE [Concomitant]
  9. ASPIRIN [Concomitant]

REACTIONS (2)
  - HELICOBACTER PYLORI IDENTIFICATION TEST POSITIVE [None]
  - RHABDOMYOLYSIS [None]
